FAERS Safety Report 7835154-8 (Version None)
Quarter: 2011Q4

REPORT INFORMATION
  Report Type: 
  Country: None (occurrence: None)
  Receive Date: 20111024
  Receipt Date: 20110920
  Transmission Date: 20120403
  Serious: Yes (Hospitalization, Other)
  Sender: FDA-Public Use
  Company Number: PHHY2011BR86752

PATIENT
  Age: 76 Year
  Sex: Female

DRUGS (6)
  1. AMLODIPINE BESYLATE [Suspect]
     Indication: HYPERTENSION
     Dosage: 5 MG, UNK
     Route: 048
  2. FUROSEMIDE [Concomitant]
  3. SPIRONOLACTONE [Concomitant]
  4. ASPIRIN [Concomitant]
     Dosage: 100 MG, UNK
  5. BISOPROLOL [Concomitant]
  6. VALSARTAN [Concomitant]

REACTIONS (5)
  - STRESS [None]
  - CARDIAC FAILURE ACUTE [None]
  - STRESS CARDIOMYOPATHY [None]
  - HYPERTENSION [None]
  - CHEST PAIN [None]
